FAERS Safety Report 10133672 (Version 1)
Quarter: 2014Q2

REPORT INFORMATION
  Report Type: Spontaneous
  Country: US (occurrence: US)
  Receive Date: 20140428
  Receipt Date: 20140428
  Transmission Date: 20141212
  Serious: Yes (Hospitalization)
  Sender: FDA-Public Use
  Company Number: US-BRISTOL-MYERS SQUIBB COMPANY-20652533

PATIENT
  Age: 17 Year
  Sex: Male
  Weight: 88.43 kg

DRUGS (2)
  1. ABILIFY [Suspect]
     Dosage: DOSE INCREASED:15MG,30MG
  2. COGENTIN [Concomitant]

REACTIONS (7)
  - Convulsion [Unknown]
  - Loss of consciousness [Unknown]
  - Off label use [Unknown]
  - Depression [Unknown]
  - Anxiety [Unknown]
  - Oculogyric crisis [Unknown]
  - Wrong technique in drug usage process [Unknown]
